FAERS Safety Report 20093571 (Version 1)
Quarter: 2021Q4

REPORT INFORMATION
  Report Type: Spontaneous
  Country: US (occurrence: US)
  Receive Date: 20211121
  Receipt Date: 20211121
  Transmission Date: 20220303
  Serious: No
  Sender: FDA-Public Use
  Company Number: US-ViiV Healthcare Limited-71201

PATIENT
  Age: 34 Year
  Sex: Female

DRUGS (2)
  1. RILPIVIRINE [Suspect]
     Active Substance: RILPIVIRINE
     Indication: Product used for unknown indication
     Dosage: UNK (400/600 MG)
     Route: 065
     Dates: start: 20210803
  2. CABOTEGRAVIR [Suspect]
     Active Substance: CABOTEGRAVIR
     Indication: Product used for unknown indication
     Dosage: UNK (400/600 MG)
     Route: 065
     Dates: start: 20210803

REACTIONS (3)
  - COVID-19 [Unknown]
  - Quarantine [Unknown]
  - Social problem [Unknown]

NARRATIVE: CASE EVENT DATE: 20211101
